FAERS Safety Report 6273057-3 (Version None)
Quarter: 2009Q3

REPORT INFORMATION
  Report Type: 
  Country: None (occurrence: None)
  Receive Date: 20090715
  Receipt Date: 20090715
  Transmission Date: 20100115
  Serious: Yes (Other)
  Sender: FDA-Public Use
  Company Number: None

PATIENT
  Age: 70 Year
  Sex: Female
  Weight: 53.5244 kg

DRUGS (1)
  1. ZICAM GEL SWABS [Suspect]
     Indication: NASOPHARYNGITIS
     Dosage: ONE EVERY 4 HRS. 20 SWABS

REACTIONS (2)
  - HYPOSMIA [None]
  - PRODUCT QUALITY ISSUE [None]
